FAERS Safety Report 6983389-9 (Version None)
Quarter: 2010Q3

REPORT INFORMATION
  Report Type: 
  Country: None (occurrence: None)
  Receive Date: 20100914
  Receipt Date: 20100914
  Transmission Date: 20110219
  Serious: No
  Sender: FDA-Public Use
  Company Number: None

PATIENT
  Age: 17 Year
  Sex: Male
  Weight: 65.7716 kg

DRUGS (2)
  1. DOCOSANOL 10% ANAVIR/GLAXOSMITHLINE [Suspect]
     Indication: ORAL HERPES
     Dosage: OINTMENT TO AFFECTED AREA 4 TIMES DAILY TOP
     Route: 061
     Dates: start: 20100906, end: 20100913
  2. CELEXA [Concomitant]

REACTIONS (5)
  - GLOSSODYNIA [None]
  - LIP SWELLING [None]
  - OEDEMA MOUTH [None]
  - OROPHARYNGEAL PAIN [None]
  - SWOLLEN TONGUE [None]
